FAERS Safety Report 11277523 (Version 2)
Quarter: 2015Q3

REPORT INFORMATION
  Report Type: Report from Study
  Country: BR (occurrence: BR)
  Receive Date: 20150716
  Receipt Date: 20150817
  Transmission Date: 20151125
  Serious: Yes (Other)
  Sender: FDA-Public Use
  Company Number: PHHY2015BR085620

PATIENT
  Sex: Male
  Weight: 69 kg

DRUGS (2)
  1. INTERFERON [Concomitant]
     Active Substance: INTERFERON
     Indication: NEUROENDOCRINE TUMOUR
     Dosage: 1 DF, QW
     Route: 058
  2. SANDOSTATIN LAR DEPOT [Suspect]
     Active Substance: OCTREOTIDE ACETATE
     Indication: NEUROENDOCRINE CARCINOMA
     Dosage: 1 DF, QMO
     Route: 030

REACTIONS (3)
  - Decreased appetite [Not Recovered/Not Resolved]
  - Deafness [Not Recovered/Not Resolved]
  - Malaise [Not Recovered/Not Resolved]
